FAERS Safety Report 7077901-1 (Version None)
Quarter: 2010Q4

REPORT INFORMATION
  Report Type: 
  Country: None (occurrence: None)
  Receive Date: 20101101
  Receipt Date: 20101025
  Transmission Date: 20110411
  Serious: Yes (Death)
  Sender: FDA-Public Use
  Company Number: US-ELI_LILLY_AND_COMPANY-US201010006001

PATIENT
  Age: 64 Year
  Sex: Female

DRUGS (6)
  1. XIGRIS [Suspect]
     Indication: SEPSIS
     Dates: start: 20101018, end: 20101019
  2. ZITHROMAX [Concomitant]
  3. CORTICOSTEROIDS [Concomitant]
  4. LEVOPHED [Concomitant]
  5. PROTONIX [Concomitant]
  6. PREDNISONE [Concomitant]

REACTIONS (1)
  - DEATH [None]
